FAERS Safety Report 20818880 (Version 1)
Quarter: 2022Q2

REPORT INFORMATION
  Report Type: Spontaneous
  Country: FR (occurrence: FR)
  Receive Date: 20220512
  Receipt Date: 20220512
  Transmission Date: 20220721
  Serious: Yes (Life-Threatening)
  Sender: FDA-Public Use
  Company Number: None

PATIENT
  Age: 16 Year
  Sex: Female
  Weight: 74 kg

DRUGS (3)
  1. PHLOROGLUCINOL [Suspect]
     Active Substance: PHLOROGLUCINOL
     Indication: Poisoning deliberate
     Dosage: FREQUENCY TIME 1TOTAL, DURATION 1DAYS
     Route: 048
     Dates: start: 20200908, end: 20200908
  2. ALPRAZOLAM [Suspect]
     Active Substance: ALPRAZOLAM
     Indication: Poisoning deliberate
     Dosage: 15 TABLETS 0.25MG, SCORED TABLET, STRENGTH: 0.25MG, FREQUENCY TIME 1TOTAL, DURATION 1DAYS, UNIT DOSE
     Route: 048
     Dates: start: 20200908, end: 20200908
  3. DOLIPRANE [Suspect]
     Active Substance: ACETAMINOPHEN
     Indication: Poisoning deliberate
     Dosage: STRENGTH:500 MG, 4GM, FREQUENCY TIME 1TOTAL,DURATION 1DAYS
     Route: 048
     Dates: start: 20200908, end: 20200908

REACTIONS (2)
  - Poisoning deliberate [Recovered/Resolved]
  - Somnolence [Unknown]

NARRATIVE: CASE EVENT DATE: 20200908
